FAERS Safety Report 11303846 (Version 1)
Quarter: 2015Q3

REPORT INFORMATION
  Report Type: Spontaneous
  Country: US (occurrence: US)
  Receive Date: 20150723
  Receipt Date: 20150723
  Transmission Date: 20151125
  Serious: No
  Sender: FDA-Public Use
  Company Number: US-JNJFOC-20150318977

PATIENT
  Age: 62 Year
  Sex: Female
  Weight: 74.84 kg

DRUGS (1)
  1. BENADRYL [Suspect]
     Active Substance: DIPHENHYDRAMINE HYDROCHLORIDE
     Indication: RASH
     Route: 048
     Dates: start: 20150318, end: 20150318

REACTIONS (2)
  - Incorrect dose administered [Unknown]
  - Product use issue [Unknown]
